FAERS Safety Report 10095712 (Version 1)
Quarter: 2014Q2

REPORT INFORMATION
  Report Type: Spontaneous
  Country: US (occurrence: US)
  Receive Date: 20140422
  Receipt Date: 20140422
  Transmission Date: 20141212
  Serious: No
  Sender: FDA-Public Use
  Company Number: US-009507513-1404USA009449

PATIENT
  Age: 29 Year
  Sex: Male

DRUGS (30)
  1. PREDNISONE [Concomitant]
  2. ATARAX (HYDROXYZINE HYDROCHLORIDE) [Concomitant]
  3. INSULIN [Concomitant]
  4. ZOLOFT [Concomitant]
  5. VITAMINS (UNSPECIFIED) [Concomitant]
  6. METHADONE HYDROCHLORIDE [Concomitant]
  7. DORNASE ALFA [Concomitant]
  8. DAPSONE [Concomitant]
  9. CHOLECALCIFEROL [Concomitant]
  10. CALCIUM CARBONATE [Concomitant]
  11. TYLENOL [Concomitant]
  12. AZITHROMYCIN [Concomitant]
  13. DOCUSATE SODIUM [Concomitant]
  14. URSODIOL [Concomitant]
  15. CELLCEPT [Concomitant]
  16. KEPPRA [Concomitant]
  17. GABAPENTIN [Concomitant]
  18. CARVEDILOL [Concomitant]
  19. BUMETANIDE [Concomitant]
  20. HYDRALAZINE [Concomitant]
  21. CLINDAMYCIN [Concomitant]
  22. CREON (PANCRELIPASE) [Concomitant]
  23. NOXAFIL [Suspect]
     Indication: ASPERGILLUS INFECTION
     Dosage: 200 MG, BID
     Route: 048
     Dates: start: 20140412, end: 20140414
  24. CIPROFLOXACIN [Concomitant]
  25. COMPAZINE [Concomitant]
  26. DIPHENHYDRAMINE HYDROCHLORIDE [Concomitant]
  27. LEVOFLOXACIN [Concomitant]
  28. PHENERGAN (PROMETHAZINE HYDROCHLORIDE) [Concomitant]
  29. REGLAN [Concomitant]
  30. MIRALAX [Concomitant]

REACTIONS (8)
  - Lymphadenopathy [Recovering/Resolving]
  - Pain in extremity [Recovered/Resolved]
  - Tendonitis [Recovered/Resolved]
  - Adverse reaction [Recovered/Resolved]
  - Hallucination [Recovered/Resolved]
  - Restlessness [Recovered/Resolved]
  - Anxiety [Recovered/Resolved]
  - Arthralgia [Recovered/Resolved]
